FAERS Safety Report 4873701-9 (Version None)
Quarter: 2006Q1

REPORT INFORMATION
  Report Type: 
  Country: None (occurrence: None)
  Receive Date: 20060104
  Receipt Date: 20060104
  Transmission Date: 20060701
  Serious: Yes (Life-Threatening, Hospitalization)
  Sender: FDA-Public Use
  Company Number: None

PATIENT
  Age: 24 Year
  Sex: Male

DRUGS (1)
  1. DIOVAN [Suspect]
     Dosage: 800MG X1
     Dates: start: 20050401, end: 20050401

REACTIONS (4)
  - ALCOHOL USE [None]
  - INTENTIONAL OVERDOSE [None]
  - REFUSAL OF TREATMENT BY PATIENT [None]
  - SUICIDE ATTEMPT [None]
